FAERS Safety Report 25962072 (Version 1)
Quarter: 2025Q4

REPORT INFORMATION
  Report Type: Spontaneous
  Country: US (occurrence: None)
  Receive Date: 20251024
  Receipt Date: 20251024
  Transmission Date: 20260117
  Serious: No
  Sender: FDA-CTU
  Company Number: None

PATIENT
  Age: 49 Year
  Sex: Female

DRUGS (1)
  1. COSENTYX [Suspect]
     Active Substance: SECUKINUMAB

REACTIONS (5)
  - Alopecia [None]
  - Blister [None]
  - Urticaria [None]
  - Pain [None]
  - Peripheral swelling [None]

NARRATIVE: CASE EVENT DATE: 20251010
